FAERS Safety Report 24736615 (Version 1)
Quarter: 2024Q4

REPORT INFORMATION
  Report Type: Spontaneous
  Country: FR (occurrence: FR)
  Receive Date: 20241216
  Receipt Date: 20241216
  Transmission Date: 20250114
  Serious: Yes (Other)
  Sender: TEVA
  Company Number: None

PATIENT
  Age: 26 Year
  Sex: Female
  Weight: 62 kg

DRUGS (9)
  1. VINCRISTINE [Suspect]
     Active Substance: VINCRISTINE
     Indication: Malignant oligodendroglioma
     Dosage: C1J8, VINCRISTINE (SULFATE)
     Route: 042
     Dates: start: 20231227, end: 20231227
  2. VINCRISTINE [Suspect]
     Active Substance: VINCRISTINE
     Indication: Malignant oligodendroglioma
     Dosage: C4J8, VINCRISTINE (SULFATE)
     Route: 042
     Dates: start: 20240524, end: 20240524
  3. VINCRISTINE [Suspect]
     Active Substance: VINCRISTINE
     Indication: Malignant oligodendroglioma
     Dosage: C2J8, VINCRISTINE (SULFATE)
     Route: 042
     Dates: start: 20240207, end: 20240207
  4. VINCRISTINE [Suspect]
     Active Substance: VINCRISTINE
     Indication: Malignant oligodendroglioma
     Dosage: C4J29, VINCRISTINE (SULFATE)
     Route: 042
     Dates: start: 20240628, end: 20240628
  5. VINCRISTINE [Suspect]
     Active Substance: VINCRISTINE
     Indication: Malignant oligodendroglioma
     Dosage: C3J8, VINCRISTINE (SULFATE)
     Route: 042
     Dates: start: 20240402, end: 20240402
  6. VINCRISTINE [Suspect]
     Active Substance: VINCRISTINE
     Indication: Malignant oligodendroglioma
     Dosage: C3J29, VINCRISTINE (SULFATE)
     Route: 042
     Dates: start: 20240423, end: 20240423
  7. VINCRISTINE [Suspect]
     Active Substance: VINCRISTINE
     Indication: Malignant oligodendroglioma
     Dosage: C1J29, VINCRISTINE (SULFATE)
     Route: 042
     Dates: start: 20240117, end: 20240117
  8. KEPPRA [Concomitant]
     Active Substance: LEVETIRACETAM
     Indication: Epilepsy
     Dosage: 2 TIMES A DAY
     Route: 002
     Dates: start: 202305
  9. LOMUSTINE [Suspect]
     Active Substance: LOMUSTINE
     Indication: Malignant oligodendroglioma
     Dosage: TIME INTERVAL: CYCLICAL: CJ11 4 CAPSULES
     Route: 048
     Dates: start: 20231220

REACTIONS (1)
  - Neutropenia [Recovered/Resolved]

NARRATIVE: CASE EVENT DATE: 20240311
